FAERS Safety Report 20962967 (Version 2)
Quarter: 2022Q3

REPORT INFORMATION
  Report Type: Spontaneous
  Country: DK (occurrence: DK)
  Receive Date: 20220615
  Receipt Date: 20220707
  Transmission Date: 20221027
  Serious: Yes (Hospitalization, Other)
  Sender: FDA-Public Use
  Company Number: DK-MLMSERVICE-20220603-3580084-1

PATIENT
  Age: 3 Decade
  Sex: Male

DRUGS (10)
  1. MORPHINE SULFATE [Interacting]
     Active Substance: MORPHINE SULFATE
     Indication: Musculoskeletal pain
     Dosage: INITIALLY 20 MG/DAY TO A MAXIMUM OF 167.5 MG DAILY
     Route: 065
     Dates: start: 2020, end: 2020
  2. MORPHINE SULFATE [Interacting]
     Active Substance: MORPHINE SULFATE
     Dosage: UNK
     Route: 048
  3. MORPHINE SULFATE [Interacting]
     Active Substance: MORPHINE SULFATE
     Indication: Musculoskeletal pain
     Dosage: INITIALLY 20 MG/DAY TO A MAXIMUM OF 167.5 MG DAILY
     Route: 065
     Dates: start: 2020, end: 2020
  4. MORPHINE SULFATE [Interacting]
     Active Substance: MORPHINE SULFATE
     Dosage: UNK
     Route: 042
  5. TACROLIMUS [Interacting]
     Active Substance: TACROLIMUS
     Indication: Cat scratch disease
     Dosage: 18 MILLIGRAM, DAILY
     Route: 048
     Dates: end: 2020
  6. TACROLIMUS [Interacting]
     Active Substance: TACROLIMUS
     Indication: Cat scratch disease
     Dosage: GRADUALLY INCREASED TO 60 MG DAILY
     Route: 048
     Dates: start: 2020, end: 2020
  7. RIFAMPIN [Interacting]
     Active Substance: RIFAMPIN
     Indication: Cat scratch disease
     Dosage: 1 DOSAGE FORM (300MG STRENGTH), Q12H
     Route: 048
     Dates: start: 2020, end: 2020
  8. RIFAMPIN [Interacting]
     Active Substance: RIFAMPIN
     Indication: Cat scratch disease
  9. DOXYCYCLINE [Concomitant]
     Active Substance: DOXYCYCLINE
     Indication: Cat scratch disease
     Dosage: 1 DOSAGE FORM (100MG STRENGTH), Q12H
     Dates: start: 2020
  10. DOXYCYCLINE [Concomitant]
     Active Substance: DOXYCYCLINE
     Indication: Cat scratch disease

REACTIONS (5)
  - Cat scratch disease [Recovered/Resolved]
  - Osteomyelitis [Recovered/Resolved]
  - Drug level decreased [Recovered/Resolved]
  - Drug interaction [Recovered/Resolved]
  - Inadequate analgesia [Recovered/Resolved]

NARRATIVE: CASE EVENT DATE: 20200101
